FAERS Safety Report 17892017 (Version 3)
Quarter: 2020Q2

REPORT INFORMATION
  Report Type: Report from Study
  Country: US (occurrence: US)
  Receive Date: 20200612
  Receipt Date: 20200616
  Transmission Date: 20200714
  Serious: Yes (Other)
  Sender: FDA-Public Use
  Company Number: NVSC2020US165037

PATIENT
  Sex: Female

DRUGS (1)
  1. ENTRESTO [Suspect]
     Active Substance: SACUBITRIL\VALSARTAN
     Indication: CARDIAC FAILURE
     Dosage: UNK
     Route: 048

REACTIONS (8)
  - Fatigue [Unknown]
  - Condition aggravated [Unknown]
  - Emotional distress [Unknown]
  - Malaise [Unknown]
  - Cardiac dysfunction [Unknown]
  - Angina pectoris [Unknown]
  - Chest pain [Unknown]
  - Cardiac disorder [Unknown]
